FAERS Safety Report 5287803-9 (Version None)
Quarter: 2007Q1

REPORT INFORMATION
  Report Type: 
  Country: None (occurrence: None)
  Receive Date: 20070117
  Receipt Date: 20061103
  Transmission Date: 20070707
  Serious: No
  Sender: FDA-Public Use
  Company Number: IPX00013

PATIENT
  Age: 3 Year
  Sex: Male
  Weight: 11 kg

DRUGS (1)
  1. IPLEX [Suspect]
     Indication: INSULIN-LIKE GROWTH FACTOR DECREASED
     Dosage: 12.0 MG/DAILY/SC
     Route: 058
     Dates: start: 20061005, end: 20061028

REACTIONS (3)
  - EPISTAXIS [None]
  - NASOPHARYNGITIS [None]
  - SWELLING FACE [None]
